FAERS Safety Report 15738770 (Version 1)
Quarter: 2018Q4

REPORT INFORMATION
  Report Type: Other
  Country: ES (occurrence: ES)
  Receive Date: 20181219
  Receipt Date: 20181219
  Transmission Date: 20190205
  Serious: Yes (Hospitalization, Other)
  Sender: FDA-Public Use
  Company Number: ES-ACTELION-A-CH2018-183408

PATIENT
  Age: 33 Year
  Sex: Male

DRUGS (1)
  1. TRACLEER [Suspect]
     Active Substance: BOSENTAN
     Indication: PULMONARY HYPERTENSION
     Dosage: UNK ()
     Route: 048

REACTIONS (12)
  - Pulmonary hypertension [Unknown]
  - Condition aggravated [Unknown]
  - Tricuspid valve incompetence [Unknown]
  - Heart and lung transplant [Unknown]
  - Cardiac resynchronisation therapy [Unknown]
  - Ventricular dysfunction [Unknown]
  - Atrial fibrillation [Unknown]
  - Cardiac ablation [Unknown]
  - Atrial flutter [Unknown]
  - Cardiovascular insufficiency [Unknown]
  - Dyspnoea [Unknown]
  - Drug intolerance [Unknown]
